FAERS Safety Report 16131972 (Version 1)
Quarter: 2019Q1

REPORT INFORMATION
  Report Type: Spontaneous
  Country: DE (occurrence: DE)
  Receive Date: 20190329
  Receipt Date: 20190329
  Transmission Date: 20190418
  Serious: Yes (Other)
  Sender: FDA-Public Use
  Company Number: DE-ASTELLAS-2019US012636

PATIENT
  Sex: Female

DRUGS (5)
  1. CONJUGATED ESTROGENS [Concomitant]
     Active Substance: ESTROGENS, CONJUGATED
     Indication: PRODUCT USED FOR UNKNOWN INDICATION
     Dosage: UNK UNK, UNKNOWN FREQ.
     Route: 065
  2. BETMIGA [Suspect]
     Active Substance: MIRABEGRON
     Dosage: 100 MG, TWICE DAILY (100 MG IN THE MORNING, 100 MG IN THE EVENING)
     Route: 065
  3. BETMIGA [Suspect]
     Active Substance: MIRABEGRON
     Indication: URGE INCONTINENCE
     Route: 065
  4. BETMIGA [Suspect]
     Active Substance: MIRABEGRON
     Route: 065
  5. BETMIGA [Suspect]
     Active Substance: MIRABEGRON
     Route: 065

REACTIONS (7)
  - Tachycardia [Unknown]
  - Overdose [Unknown]
  - Arrhythmia [Unknown]
  - Intentional product use issue [Unknown]
  - Dyspnoea [Unknown]
  - Drug ineffective [Unknown]
  - Tremor [Unknown]
